FAERS Safety Report 9995406 (Version 1)
Quarter: 2014Q1

REPORT INFORMATION
  Report Type: Spontaneous
  Country: US (occurrence: None)
  Receive Date: 20140306
  Receipt Date: 20140306
  Transmission Date: 20141002
  Serious: Yes (Death, Hospitalization)
  Sender: FDA-Public Use
  Company Number: UCM201401-000012

PATIENT
  Age: 41 Year
  Sex: Female

DRUGS (10)
  1. LAMOTRIGINE (LAMOTRIGINE) (LAMOTRIGINE) [Suspect]
  2. CLOMIPRAMINE [Suspect]
  3. BENZTROPINE [Suspect]
  4. ZIPRASIDONE [Suspect]
  5. LITHIUM [Suspect]
  6. PROPOFOL [Suspect]
     Indication: AGITATION
     Route: 042
  7. SUCCINYLCHOLINE [Suspect]
  8. DANTROLENE [Suspect]
  9. CLONAZEPAM (CLONAZEPAM) (CLONAZEPAM) [Suspect]
  10. BROMOCRIPTINE [Suspect]

REACTIONS (4)
  - Neuroleptic malignant syndrome [None]
  - Multi-organ failure [None]
  - Respiratory failure [None]
  - Hyperthermia malignant [None]
